FAERS Safety Report 8171543-2 (Version None)
Quarter: 2012Q1

REPORT INFORMATION
  Report Type: 
  Country: None (occurrence: None)
  Receive Date: 20120228
  Receipt Date: 20120217
  Transmission Date: 20120608
  Serious: Yes (Hospitalization)
  Sender: FDA-Public Use
  Company Number: US-BAYER-200915739NA

PATIENT
  Age: 63 Year
  Sex: Male

DRUGS (1)
  1. AVELOX [Suspect]
     Indication: PRODUCT USED FOR UNKNOWN INDICATION
     Dosage: UNK
     Dates: start: 20090301, end: 20090301

REACTIONS (6)
  - JOINT SWELLING [None]
  - POLYARTHRITIS [None]
  - SERUM SICKNESS [None]
  - ARTHRALGIA [None]
  - MOBILITY DECREASED [None]
  - MUSCULAR WEAKNESS [None]
